FAERS Safety Report 4483420-9 (Version None)
Quarter: 2004Q4

REPORT INFORMATION
  Report Type: 
  Country: None (occurrence: None)
  Receive Date: 20041020
  Receipt Date: 20040930
  Transmission Date: 20050328
  Serious: Yes (Other)
  Sender: FDA-Public Use
  Company Number: USA040979797

PATIENT
  Age: 57 Year
  Sex: Female
  Weight: 80 kg

DRUGS (4)
  1. HUMULIN R [Suspect]
     Dates: start: 19820101, end: 20000101
  2. HUMULIN N [Suspect]
     Dosage: 40 U DAY
     Dates: start: 19820101, end: 20000101
  3. HUMALOG [Suspect]
     Dates: start: 20000101
  4. LANTUS [Concomitant]

REACTIONS (5)
  - ANAEMIA [None]
  - BLOOD GLUCOSE DECREASED [None]
  - DIABETIC RETINOPATHY [None]
  - RENAL FAILURE [None]
  - SOMNOLENCE [None]
